FAERS Safety Report 4659811-X (Version None)
Quarter: 2005Q2

REPORT INFORMATION
  Report Type: 
  Country: None (occurrence: None)
  Receive Date: 20050510
  Receipt Date: 20050502
  Transmission Date: 20051028
  Serious: Yes (Death)
  Sender: FDA-Public Use
  Company Number: 05P-163-0298976-00

PATIENT
  Age: 82 Year
  Sex: Male

DRUGS (3)
  1. HUMIRA [Suspect]
     Indication: RHEUMATOID ARTHRITIS
     Dosage: 40 MG, 1 IN 2 WK, SUBCUTANEOUS
     Route: 058
     Dates: start: 20050418, end: 20050401
  2. PREDNISONE TAB [Concomitant]
  3. PENICILLAMINE [Concomitant]

REACTIONS (1)
  - PULMONARY EMBOLISM [None]
